FAERS Safety Report 12987483 (Version 7)
Quarter: 2018Q3

REPORT INFORMATION
  Report Type: Spontaneous
  Country: FR (occurrence: FR)
  Receive Date: 20161130
  Receipt Date: 20180822
  Transmission Date: 20181010
  Serious: Yes (Death, Hospitalization)
  Sender: FDA-Public Use
  Company Number: FR-ROCHE-1858789

PATIENT
  Age: 48 Year
  Sex: Male

DRUGS (6)
  1. PREDNISOLONE. [Concomitant]
     Active Substance: PREDNISOLONE
  2. RAMIPRIL. [Concomitant]
     Active Substance: RAMIPRIL
  3. CODEINE [Concomitant]
     Active Substance: CODEINE
  4. ZELBORAF [Suspect]
     Active Substance: VEMURAFENIB
     Indication: GASTROINTESTINAL MELANOMA
     Route: 048
     Dates: start: 20160202, end: 20160213
  5. COTELLIC [Suspect]
     Active Substance: COBIMETINIB
     Indication: GASTROINTESTINAL MELANOMA
     Route: 048
     Dates: start: 20160202, end: 20160213
  6. PARACETAMOL [Concomitant]
     Active Substance: ACETAMINOPHEN

REACTIONS (1)
  - Drug reaction with eosinophilia and systemic symptoms [Recovered/Resolved]

NARRATIVE: CASE EVENT DATE: 20160209
